FAERS Safety Report 9880448 (Version 1)
Quarter: 2014Q1

REPORT INFORMATION
  Report Type: Spontaneous
  Country: GB (occurrence: None)
  Receive Date: 20140204
  Receipt Date: 20140204
  Transmission Date: 20141002
  Serious: Yes (Death, Hospitalization)
  Sender: FDA-Public Use
  Company Number: GB-014508

PATIENT
  Age: 73 Year
  Sex: Male

DRUGS (1)
  1. PICOLAX [Suspect]
     Indication: BOWEL PREPARATION
     Dosage: (1 SACHET AT 2 PM THEN 6PM THE DAY BEFORE EXAMINATION ORAL)
     Route: 048
     Dates: start: 20130811, end: 20130811

REACTIONS (4)
  - Self-medication [None]
  - Cardiac arrest [None]
  - Myocardial infarction [None]
  - Neoplasm progression [None]
